FAERS Safety Report 6082808-2 (Version None)
Quarter: 2009Q1

REPORT INFORMATION
  Report Type: 
  Country: None (occurrence: None)
  Receive Date: 20090202
  Receipt Date: 20070413
  Transmission Date: 20090719
  Serious: Yes (Life-Threatening, Other)
  Sender: FDA-Public Use
  Company Number: 262740

PATIENT
  Age: 41 Year
  Sex: Female

DRUGS (8)
  1. NOVOLOG [Suspect]
     Indication: INSULIN-REQUIRING TYPE 2 DIABETES MELLITUS
     Dosage: 5 UNITS BEFORE EACH MEAL, SUBCUTANEOUS
     Route: 058
     Dates: start: 20070409, end: 20070411
  2. PROTONIX /01263201/ (PANTOPRAZOLE) [Concomitant]
  3. LEXAPRO [Concomitant]
  4. LIPITOR [Concomitant]
  5. ALBUTEROL /00139501/ (SALBUTAMOL) [Concomitant]
  6. AVANDIA [Concomitant]
  7. NOVOLIN R [Concomitant]
  8. LEVEMIR [Concomitant]

REACTIONS (1)
  - HYPOGLYCAEMIC SEIZURE [None]
